FAERS Safety Report 6796300-0 (Version None)
Quarter: 2010Q2

REPORT INFORMATION
  Report Type: 
  Country: None (occurrence: None)
  Receive Date: 20100624
  Receipt Date: 20100624
  Transmission Date: 20101027
  Serious: Yes (Life-Threatening, Disabling, Other)
  Sender: FDA-Public Use
  Company Number: None

PATIENT
  Age: 26 Year
  Sex: Female
  Weight: 70.3075 kg

DRUGS (2)
  1. VENTOLIN HFA [Suspect]
     Indication: ASTHMA
     Dosage: 2 PUFFS AS NEEDED INHAL
     Route: 055
     Dates: start: 20090101, end: 20100622
  2. PROAIR HFA [Suspect]
     Dosage: 2 PUFFS AS NEEDED INHAL
     Route: 055

REACTIONS (4)
  - DEVICE INEFFECTIVE [None]
  - DRUG INEFFECTIVE [None]
  - PNEUMONIA [None]
  - PRODUCT SUBSTITUTION ISSUE [None]
